FAERS Safety Report 7647442-9 (Version None)
Quarter: 2011Q3

REPORT INFORMATION
  Report Type: 
  Country: None (occurrence: None)
  Receive Date: 20110801
  Receipt Date: 20110728
  Transmission Date: 20111222
  Serious: Yes (Life-Threatening, Hospitalization, Disabling)
  Sender: FDA-Public Use
  Company Number: ES-B.I. PHARMACEUTICALS,INC./RIDGEFIELD-2011-ES-00178ES

PATIENT
  Sex: Female

DRUGS (8)
  1. PRADAXA [Suspect]
     Indication: ATRIAL FIBRILLATION
     Dosage: 110 MG
     Route: 048
     Dates: start: 20090101, end: 20110701
  2. IMURAN [Concomitant]
     Indication: SYSTEMIC LUPUS ERYTHEMATOSUS
     Dosage: 150 MG
     Route: 048
  3. ACETAMINOPHEN [Concomitant]
     Indication: PAIN
     Dosage: PRN
     Route: 048
  4. BOI K [Concomitant]
     Indication: HYPERTENSION
     Dosage: 2 TABLETS/WEEK
     Route: 048
  5. PANTOPRAZOLE [Concomitant]
     Indication: HAEMORRHAGE PROPHYLAXIS
     Dosage: 40 MG
     Route: 048
  6. REXER FLAS [Concomitant]
     Indication: DEPRESSION
     Dosage: 30 MG
     Route: 048
  7. FUROSEMIDE [Concomitant]
     Indication: HYPERTENSION
     Dosage: 40 MG/2 DAYS
     Route: 048
  8. PREDNISONE [Concomitant]
     Indication: SYSTEMIC LUPUS ERYTHEMATOSUS
     Dosage: 5MG/48 HOURS
     Route: 048

REACTIONS (3)
  - CEREBRAL INFARCTION [None]
  - WITHDRAWAL SYNDROME [None]
  - DRUG PRESCRIBING ERROR [None]
